FAERS Safety Report 21443610 (Version 3)
Quarter: 2022Q4

REPORT INFORMATION
  Report Type: Spontaneous
  Country: PL (occurrence: PL)
  Receive Date: 20221012
  Receipt Date: 20221129
  Transmission Date: 20230113
  Serious: Yes (Other)
  Sender: FDA-Public Use
  Company Number: PL-NOVARTISPH-NVSC2022PL227184

PATIENT
  Sex: Male

DRUGS (3)
  1. HYRIMOZ [Suspect]
     Active Substance: ADALIMUMAB-ADAZ
     Indication: Product used for unknown indication
     Dosage: UNK
     Route: 065
  2. HYRIMOZ [Suspect]
     Active Substance: ADALIMUMAB-ADAZ
     Dosage: 0.04G / 0.8 ML (EVERY 2 WEEKS)
     Route: 030
     Dates: start: 202208
  3. BRODALUMAB [Concomitant]
     Active Substance: BRODALUMAB
     Indication: Product used for unknown indication
     Dosage: UNK, Q2W
     Route: 065

REACTIONS (5)
  - Psychotic symptom [Recovered/Resolved]
  - Chills [Recovered/Resolved]
  - Influenza like illness [Recovered/Resolved]
  - Sleep disorder [Recovered/Resolved]
  - Skin lesion [Unknown]

NARRATIVE: CASE EVENT DATE: 20221001
